FAERS Safety Report 9768169 (Version 1)
Quarter: 2013Q4

REPORT INFORMATION
  Report Type: Report from Study
  Country: US (occurrence: US)
  Receive Date: 20131217
  Receipt Date: 20131217
  Transmission Date: 20140711
  Serious: Yes (Hospitalization)
  Sender: FDA-Public Use
  Company Number: PHEH2013US025827

PATIENT
  Age: 29 Year
  Sex: Male
  Weight: 137 kg

DRUGS (1)
  1. TOBI [Suspect]
     Indication: CYSTIC FIBROSIS
     Dosage: 300MG/5ML, BID
     Route: 055

REACTIONS (1)
  - Influenza [Unknown]
